FAERS Safety Report 24654110 (Version 1)
Quarter: 2024Q4

REPORT INFORMATION
  Report Type: Spontaneous
  Country: US (occurrence: US)
  Receive Date: 20241122
  Receipt Date: 20241122
  Transmission Date: 20250114
  Serious: No
  Sender: TEVA
  Company Number: US-TEVA-VS-3236358

PATIENT
  Age: 66 Year
  Sex: Female
  Weight: 71 kg

DRUGS (1)
  1. AUSTEDO [Suspect]
     Active Substance: DEUTETRABENAZINE
     Indication: Bipolar II disorder
     Route: 048

REACTIONS (3)
  - Frequent bowel movements [Unknown]
  - Off label use [Unknown]
  - Product residue present [Unknown]

NARRATIVE: CASE EVENT DATE: 20240101
